FAERS Safety Report 8587179-5 (Version None)
Quarter: 2012Q3

REPORT INFORMATION
  Report Type: 
  Country: None (occurrence: None)
  Receive Date: 20120810
  Receipt Date: 20120326
  Transmission Date: 20120928
  Serious: No
  Sender: FDA-Public Use
  Company Number: US-ASTRAZENECA-2010SE19556

PATIENT
  Age: 51 Year
  Sex: Female

DRUGS (12)
  1. ARIMIDEX [Suspect]
     Indication: BREAST CANCER
     Route: 048
     Dates: start: 20100101, end: 20100101
  2. ARIMIDEX [Suspect]
     Route: 048
     Dates: start: 20100408
  3. VALIUM [Concomitant]
  4. LEXAPRO [Concomitant]
     Indication: BIPOLAR DISORDER
     Dosage: 20 MGS
  5. CRESTOR [Suspect]
     Indication: BLOOD CHOLESTEROL ABNORMAL
     Route: 048
  6. ZOMETA [Concomitant]
     Indication: BONE DISORDER
     Dosage: MONTHLY
     Route: 042
  7. ZETIA [Concomitant]
  8. SYMBICORT [Suspect]
     Indication: ASTHMA
     Dosage: 160 MCG, AS NEEDED
     Route: 055
     Dates: start: 20120101
  9. FASLODEX [Suspect]
     Indication: BREAST CANCER
     Dosage: 500 MG
     Route: 030
     Dates: start: 20111201
  10. SYNTHROID [Concomitant]
     Indication: HYPOTHYROIDISM
     Dosage: DAILY
     Route: 048
  11. COUMADIN [Concomitant]
     Indication: THROMBOSIS
  12. DILAUDID [Concomitant]
     Indication: PAIN

REACTIONS (14)
  - DEPRESSION [None]
  - ABDOMINAL PAIN UPPER [None]
  - RESPIRATORY DISORDER [None]
  - MOOD SWINGS [None]
  - ARTHRALGIA [None]
  - DRUG PRESCRIBING ERROR [None]
  - DEPRESSED MOOD [None]
  - MANIA [None]
  - ALOPECIA [None]
  - HOT FLUSH [None]
  - UTERINE HAEMORRHAGE [None]
  - MENOPAUSE [None]
  - BACK PAIN [None]
  - ANGER [None]
